FAERS Safety Report 6139347-X (Version None)
Quarter: 2009Q2

REPORT INFORMATION
  Report Type: 
  Country: None (occurrence: None)
  Receive Date: 20090401
  Receipt Date: 20090326
  Transmission Date: 20091009
  Serious: Yes (Hospitalization)
  Sender: FDA-Public Use
  Company Number: FR-ROCHE-624232

PATIENT
  Sex: Male

DRUGS (5)
  1. CLONAZEPAM [Suspect]
     Dosage: STRENGTH 2.5 MG/ML; IN THE MORNING AND IN THE EVENING
     Route: 048
  2. LOXAPAC [Suspect]
     Route: 048
  3. CLOZAPINE [Suspect]
     Dosage: DRUG NAME REPORTED AS CLOZAPINE 100; 1 DOSE FORM IN THE EVENING
     Route: 048
  4. EFFEXOR [Suspect]
     Dosage: DRUG NAME REPORTED AS EFFEXOR 75 LP; IN THE MORNING
     Route: 048
  5. DEPAKOTE [Suspect]
     Dosage: ONE DOSE FORM IN THE MORNING AND 1 DOSE FORM IN THE EVENING
     Route: 048

REACTIONS (2)
  - CYANOSIS [None]
  - HYPOXIA [None]
